FAERS Safety Report 11939782 (Version 1)
Quarter: 2016Q1

REPORT INFORMATION
  Report Type: Spontaneous
  Country: US (occurrence: US)
  Receive Date: 20160122
  Receipt Date: 20160122
  Transmission Date: 20160526
  Serious: No
  Sender: FDA-Public Use
  Company Number: US-PURDUE-USA-2015-0123785

PATIENT
  Age: 74 Year
  Sex: Female
  Weight: 56 kg

DRUGS (2)
  1. BUPIVACAINE [Suspect]
     Active Substance: BUPIVACAINE
     Indication: PRODUCT USED FOR UNKNOWN INDICATION
     Dosage: 7.106 MG, DAILY
     Route: 065
  2. DILAUDID [Suspect]
     Active Substance: HYDROMORPHONE HYDROCHLORIDE
     Indication: PRODUCT USED FOR UNKNOWN INDICATION
     Dosage: 94 MG, DAILY
     Route: 042

REACTIONS (2)
  - Unevaluable event [Unknown]
  - Drug effect decreased [Unknown]
